FAERS Safety Report 12468276 (Version 10)
Quarter: 2016Q3

REPORT INFORMATION
  Report Type: Report from Study
  Country: CA (occurrence: CA)
  Receive Date: 20160615
  Receipt Date: 20160922
  Transmission Date: 20161109
  Serious: Yes (Hospitalization)
  Sender: FDA-Public Use
  Company Number: CA-JNJFOC-20160605455

PATIENT
  Age: 5 Year
  Sex: Female
  Weight: 21 kg

DRUGS (8)
  1. GOLIMUMAB [Suspect]
     Active Substance: GOLIMUMAB
     Indication: JUVENILE IDIOPATHIC ARTHRITIS
     Route: 042
     Dates: start: 20150917
  2. VITAMIN D [Concomitant]
     Active Substance: CHOLECALCIFEROL
     Indication: JUVENILE IDIOPATHIC ARTHRITIS
     Route: 048
     Dates: start: 201405
  3. POLYETHYLENE GLYCOL 3350. [Concomitant]
     Active Substance: POLYETHYLENE GLYCOL 3350
     Indication: CONSTIPATION
     Route: 048
     Dates: start: 20151228
  4. FOLIC ACID. [Concomitant]
     Active Substance: FOLIC ACID
     Indication: JUVENILE IDIOPATHIC ARTHRITIS
     Route: 048
     Dates: start: 20140602
  5. METHOTREXATE. [Concomitant]
     Active Substance: METHOTREXATE
     Dosage: DURATION: 1 TO 3 YEARS, CUMULATIVE DOSE GIVEN: {500 MG
     Route: 048
  6. NAPROXEN. [Concomitant]
     Active Substance: NAPROXEN
     Indication: JUVENILE IDIOPATHIC ARTHRITIS
     Route: 048
     Dates: start: 201506
  7. GOLIMUMAB [Suspect]
     Active Substance: GOLIMUMAB
     Indication: JUVENILE IDIOPATHIC ARTHRITIS
     Dosage: 6TH INFUSION
     Route: 042
     Dates: start: 20160526
  8. ALVESCO [Concomitant]
     Active Substance: CICLESONIDE
     Indication: UPPER RESPIRATORY TRACT INFECTION
     Route: 065
     Dates: start: 20160520

REACTIONS (2)
  - Pneumonia streptococcal [Recovered/Resolved]
  - Pleural effusion [Recovered/Resolved]

NARRATIVE: CASE EVENT DATE: 20160530
